FAERS Safety Report 13725398 (Version 1)
Quarter: 2017Q3

REPORT INFORMATION
  Report Type: Spontaneous
  Country: US (occurrence: US)
  Receive Date: 20170706
  Receipt Date: 20170706
  Transmission Date: 20171127
  Serious: No
  Sender: FDA-Public Use
  Company Number: US-PFIZER INC-2017288642

PATIENT
  Sex: Male

DRUGS (2)
  1. RAPAMUNE [Suspect]
     Active Substance: SIROLIMUS
     Indication: GRAFT VERSUS HOST DISEASE
     Dosage: UNK
  2. RAPAMUNE [Suspect]
     Active Substance: SIROLIMUS
     Indication: MYELODYSPLASTIC SYNDROME

REACTIONS (1)
  - Product use in unapproved indication [Unknown]
